FAERS Safety Report 10930331 (Version 1)
Quarter: 2015Q1

REPORT INFORMATION
  Report Type: Spontaneous
  Country: US (occurrence: US)
  Receive Date: 20150319
  Receipt Date: 20150319
  Transmission Date: 20150721
  Serious: No
  Sender: FDA-Public Use
  Company Number: US-PFIZER INC-2015095380

PATIENT
  Sex: Male
  Weight: 88.44 kg

DRUGS (1)
  1. VIAGRA [Suspect]
     Active Substance: SILDENAFIL CITRATE
     Indication: SEXUAL DYSFUNCTION
     Dosage: UNK
     Dates: start: 20150301, end: 201503

REACTIONS (3)
  - Painful erection [Unknown]
  - Intentional product misuse [Recovered/Resolved]
  - Erection increased [Unknown]

NARRATIVE: CASE EVENT DATE: 201503
